FAERS Safety Report 6244730-8 (Version None)
Quarter: 2009Q2

REPORT INFORMATION
  Report Type: 
  Country: None (occurrence: None)
  Receive Date: 20090623
  Receipt Date: 20090623
  Transmission Date: 20091009
  Serious: Yes (Other)
  Sender: FDA-Public Use
  Company Number: None

PATIENT
  Age: 50 Year
  Sex: Female
  Weight: 61.4 kg

DRUGS (1)
  1. IMITREX [Suspect]
     Indication: MIGRAINE
     Dosage: 100MG -1 PII WHEN NEEDED
     Dates: start: 20090101

REACTIONS (2)
  - MIGRAINE [None]
  - PRODUCT SUBSTITUTION ISSUE [None]
